FAERS Safety Report 4617227-6 (Version None)
Quarter: 2005Q1

REPORT INFORMATION
  Report Type: 
  Country: None (occurrence: None)
  Receive Date: 20050323
  Receipt Date: 20050316
  Transmission Date: 20050727
  Serious: Yes (Hospitalization)
  Sender: FDA-Public Use
  Company Number: PHNU2005PL01413

PATIENT
  Age: 44 Year
  Sex: Female
  Weight: 55 kg

DRUGS (7)
  1. BISOCARD [Concomitant]
  2. CILAZAPRIL [Concomitant]
  3. SIMVASTATIN [Concomitant]
  4. HYDROXYZINUM [Concomitant]
  5. ISOPTIN SR [Concomitant]
  6. KETONAL [Concomitant]
  7. LOCOL [Suspect]
     Indication: LIPIDS ABNORMAL
     Dosage: 40 MG, ONCE/SINGLE
     Route: 048
     Dates: start: 20050216, end: 20050216

REACTIONS (2)
  - HALLUCINATIONS, MIXED [None]
  - SLEEP DISORDER [None]
